FAERS Safety Report 12976209 (Version 3)
Quarter: 2017Q1

REPORT INFORMATION
  Report Type: Report from Study
  Country: US (occurrence: US)
  Receive Date: 20161126
  Receipt Date: 20170227
  Transmission Date: 20170428
  Serious: Yes (Other)
  Sender: FDA-Public Use
  Company Number: US-BRISTOL-MYERS SQUIBB COMPANY-BMS-2016-098002

PATIENT
  Sex: Male
  Weight: 74.83 kg

DRUGS (1)
  1. ABATACEPT [Suspect]
     Active Substance: ABATACEPT
     Indication: RHEUMATOID ARTHRITIS
     Dosage: UNK
     Route: 042
     Dates: start: 201608, end: 201611

REACTIONS (6)
  - Skin cancer [Unknown]
  - Skin neoplasm excision [Unknown]
  - Drug ineffective [Unknown]
  - Arthropathy [Unknown]
  - Infection [Unknown]
  - Tooth disorder [Unknown]
